FAERS Safety Report 15863056 (Version 1)
Quarter: 2018Q4

REPORT INFORMATION
  Report Type: Spontaneous
  Country: US (occurrence: US)
  Receive Date: 20181231
  Receipt Date: 20181231
  Transmission Date: 20190205
  Serious: Yes (Life-Threatening)
  Sender: FDA-Public Use
  Company Number: None

PATIENT
  Age: 38 Year
  Sex: Female
  Weight: 129.4 kg

DRUGS (2)
  1. VENOFER [Concomitant]
     Active Substance: IRON SUCROSE
  2. MIRCERA [Suspect]
     Active Substance: METHOXY POLYETHYLENE GLYCOL-EPOETIN BETA
     Indication: ANAEMIA
     Route: 040
     Dates: start: 20180316, end: 20180316

REACTIONS (10)
  - Cyanosis [None]
  - Heart rate decreased [None]
  - Vomiting [None]
  - Dyspnoea [None]
  - Back pain [None]
  - Malaise [None]
  - Blood pressure increased [None]
  - Blood pressure systolic increased [None]
  - Depressed level of consciousness [None]
  - Dialysis [None]

NARRATIVE: CASE EVENT DATE: 20180316
